FAERS Safety Report 5963430-2 (Version None)
Quarter: 2008Q4

REPORT INFORMATION
  Report Type: 
  Country: None (occurrence: None)
  Receive Date: 20081121
  Receipt Date: 20081121
  Transmission Date: 20090506
  Serious: No
  Sender: FDA-Public Use
  Company Number: None

PATIENT
  Age: 36 Year
  Sex: Female
  Weight: 90 kg

DRUGS (11)
  1. INSULIN NPH [Suspect]
     Dosage: NPH 15U
  2. LANTUS [Suspect]
     Indication: TYPE 1 DIABETES MELLITUS
     Dosage: GLARGINE 30U ASPART
  3. CINACALCET [Concomitant]
  4. EPOETIN [Concomitant]
  5. DILAUDID [Concomitant]
  6. LANSOPRAZOLE [Concomitant]
  7. LISINOPRIL [Concomitant]
  8. METOPROLOL TARTRATE [Concomitant]
  9. PARACALITOL [Concomitant]
  10. VIT K. [Concomitant]
  11. SEVELEMAR [Concomitant]

REACTIONS (6)
  - BLOOD GLUCOSE DECREASED [None]
  - CONFUSIONAL STATE [None]
  - DECREASED APPETITE [None]
  - DIABETIC KETOACIDOSIS [None]
  - FEELING JITTERY [None]
  - TREATMENT NONCOMPLIANCE [None]
